FAERS Safety Report 6278341-5 (Version None)
Quarter: 2009Q3

REPORT INFORMATION
  Report Type: 
  Country: None (occurrence: None)
  Receive Date: 20090720
  Receipt Date: 20090720
  Transmission Date: 20100115
  Serious: Yes (Disabling, Other)
  Sender: FDA-Public Use
  Company Number: None

PATIENT
  Age: 32 Year
  Sex: Female
  Weight: 99.7913 kg

DRUGS (1)
  1. MIRENA [Suspect]
     Indication: CONTRACEPTION
     Dosage: GOOD FOR FIVE YEARS FIVE YEARS VAG
     Route: 067
     Dates: start: 20061228, end: 20090715

REACTIONS (18)
  - ABDOMINAL DISTENSION [None]
  - AMENORRHOEA [None]
  - ARTHRALGIA [None]
  - BACK PAIN [None]
  - BREAST PAIN [None]
  - CONDITION AGGRAVATED [None]
  - FEAR [None]
  - GENERAL PHYSICAL HEALTH DETERIORATION [None]
  - HEADACHE [None]
  - HYPERTENSION [None]
  - MENSTRUATION IRREGULAR [None]
  - NASAL CONGESTION [None]
  - NAUSEA [None]
  - NERVOUSNESS [None]
  - SLEEP APNOEA SYNDROME [None]
  - SNORING [None]
  - VAGINAL ODOUR [None]
  - WEIGHT INCREASED [None]
